FAERS Safety Report 25837415 (Version 1)
Quarter: 2025Q3

REPORT INFORMATION
  Report Type: Spontaneous
  Country: EU (occurrence: A1)
  Receive Date: 20250923
  Receipt Date: 20250923
  Transmission Date: 20251021
  Serious: Yes (Hospitalization, Other)
  Sender: BRECKENRIDGE PHARMACEUTICAL, INC.
  Company Number: A1-Breckenridge Pharmaceutical, Inc.-2185126

PATIENT
  Sex: Female

DRUGS (8)
  1. DULOXETINE [Suspect]
     Active Substance: DULOXETINE
  2. BUTYLSCOPOLAMINE BROMIDE [Suspect]
     Active Substance: BUTYLSCOPOLAMINE BROMIDE
  3. SENNA [Concomitant]
     Active Substance: SENNOSIDES
  4. CODEINE PHOSPHATE [Suspect]
     Active Substance: CODEINE PHOSPHATE
  5. NAPROXEN [Concomitant]
     Active Substance: NAPROXEN
  6. ASPIRIN [Concomitant]
     Active Substance: ASPIRIN
  7. PREGABALIN [Concomitant]
     Active Substance: PREGABALIN
  8. TRAMADOL HYDROCHLORIDE [Concomitant]
     Active Substance: TRAMADOL HYDROCHLORIDE

REACTIONS (9)
  - Pneumonia [Unknown]
  - Rash [Unknown]
  - Irritable bowel syndrome [Unknown]
  - Diarrhoea [Unknown]
  - Constipation [Unknown]
  - Post-traumatic stress disorder [Unknown]
  - Asthma [Unknown]
  - Lung disorder [Unknown]
  - Medical induction of coma [Unknown]
